FAERS Safety Report 12592261 (Version 1)
Quarter: 2016Q3

REPORT INFORMATION
  Report Type: Spontaneous
  Country: BR (occurrence: BR)
  Receive Date: 20160726
  Receipt Date: 20160726
  Transmission Date: 20161109
  Serious: Yes (Hospitalization)
  Sender: FDA-Public Use
  Company Number: BR-ROCHE-1800233

PATIENT
  Sex: Male
  Weight: 78 kg

DRUGS (10)
  1. XELODA [Suspect]
     Active Substance: CAPECITABINE
     Indication: RECTAL CANCER
     Dosage: DATE OF LAST INFUSION BEFORE THE HOSPITALIZATION: 09/JUN/2016 C1D1 (CYCLE 1, DAY 1) OF A PROTOCOL WI
     Route: 048
  2. SIMETHICONE (DIMETHICONE) [Concomitant]
     Active Substance: DIMETHICONE
  3. XARELTO [Suspect]
     Active Substance: RIVAROXABAN
     Indication: PULMONARY EMBOLISM
     Route: 065
  4. DIOVAN AMLO [Concomitant]
     Active Substance: AMLODIPINE\VALSARTAN
  5. NAUSEDRON [Concomitant]
     Active Substance: ONDANSETRON HYDROCHLORIDE
  6. OMEPRAZOLE. [Concomitant]
     Active Substance: OMEPRAZOLE
  7. MAREVAN [Concomitant]
     Active Substance: WARFARIN SODIUM
  8. IMOSEC [Concomitant]
     Active Substance: LOPERAMIDE
  9. DIGESAN [Concomitant]
     Active Substance: BROMOPRIDE
  10. TEVAOXALI [Suspect]
     Active Substance: OXALIPLATIN
     Indication: RECTAL CANCER
     Dosage: DATE OF LAST INFUSION BEFORE THE HOSPITALIZATION: 09/JUN/2016 C1D1 (CYCLE 1, DAY 1) OF A PROTOCOL WI
     Route: 042

REACTIONS (7)
  - Urinary tract infection [Recovered/Resolved]
  - Haematuria [Recovered/Resolved]
  - Dehydration [Recovered/Resolved]
  - Electrolyte imbalance [Recovered/Resolved]
  - Subileus [Recovered/Resolved]
  - Gastrointestinal haemorrhage [Recovered/Resolved]
  - Diarrhoea [Recovered/Resolved]
